FAERS Safety Report 5007804-5 (Version None)
Quarter: 2006Q2

REPORT INFORMATION
  Report Type: 
  Country: None (occurrence: None)
  Receive Date: 20060522
  Receipt Date: 20060511
  Transmission Date: 20061013
  Serious: Yes (Other)
  Sender: FDA-Public Use
  Company Number: FR-GLAXOSMITHKLINE-B0424490A

PATIENT
  Age: 37 Year
  Sex: Male

DRUGS (1)
  1. IMIGRANE [Suspect]
     Indication: CLUSTER HEADACHE
     Dosage: 8SPR PER DAY
     Route: 045

REACTIONS (3)
  - DRUG ABUSER [None]
  - DRUG ADMINISTRATION ERROR [None]
  - NAUSEA [None]
